FAERS Safety Report 4862917-3 (Version None)
Quarter: 2005Q4

REPORT INFORMATION
  Report Type: 
  Country: None (occurrence: None)
  Receive Date: 20051219
  Receipt Date: 20051207
  Transmission Date: 20060501
  Serious: Yes (Other)
  Sender: FDA-Public Use
  Company Number: 2005119576

PATIENT
  Age: 63 Year
  Sex: Female
  Weight: 42.1845 kg

DRUGS (5)
  1. PREDNISONE [Suspect]
     Indication: INFLAMMATION
     Dates: start: 20050803
  2. KAOPECTATE (ATTAPULGITE) [Suspect]
     Indication: FREQUENT BOWEL MOVEMENTS
     Dosage: 15 MG 3 TO 4 TIMES DAILY
     Dates: start: 20050819
  3. PRILOSEC [Suspect]
     Indication: ILL-DEFINED DISORDER
     Dosage: 20 MG
     Dates: start: 20050819
  4. CLORAZEPATE (CLORAZEPATE DIPOTASSIUM) [Concomitant]
  5. OXYGEN (OXYGEN) [Concomitant]

REACTIONS (11)
  - ASTHENIA [None]
  - DRY MOUTH [None]
  - FAECES DISCOLOURED [None]
  - FATIGUE [None]
  - FEELING COLD [None]
  - FEELING HOT [None]
  - FREQUENT BOWEL MOVEMENTS [None]
  - HEADACHE [None]
  - HYPERHIDROSIS [None]
  - MELAENA [None]
  - OEDEMA PERIPHERAL [None]
